FAERS Safety Report 8156483-7 (Version None)
Quarter: 2012Q1

REPORT INFORMATION
  Report Type: 
  Country: None (occurrence: None)
  Receive Date: 20120222
  Receipt Date: 20120216
  Transmission Date: 20120608
  Serious: Yes (Other)
  Sender: FDA-Public Use
  Company Number: FR-PFIZER INC-2012041531

PATIENT
  Age: 43 Year
  Sex: Male

DRUGS (9)
  1. CLINDAMYCIN HCL [Suspect]
     Dosage: UNK
     Route: 048
     Dates: start: 20111108
  2. OMEPRAZOLE [Suspect]
     Dosage: UNK
     Route: 048
     Dates: start: 20111108, end: 20111124
  3. ISKEDYL [Suspect]
     Dosage: UNK
     Route: 048
     Dates: start: 20111108, end: 20111122
  4. ZITHROMAX [Suspect]
     Indication: EYE INFECTION TOXOPLASMAL
     Dosage: UNK
     Route: 048
     Dates: start: 20111108, end: 20111124
  5. PREDNISOLONE [Suspect]
     Dosage: UNK
     Route: 048
     Dates: start: 20111108, end: 20111122
  6. BRINZOLAMIDE/TIMOLOL [Concomitant]
     Dosage: UNK
  7. CHIBRO-CADRON [Concomitant]
     Dosage: UNK
  8. INDOMETHACIN [Concomitant]
     Dosage: UNK
  9. ASPIRIN AND DIPYRIDAMOLE [Concomitant]
     Dosage: UNK

REACTIONS (1)
  - PANCREATITIS ACUTE [None]
